FAERS Safety Report 22657339 (Version 1)
Quarter: 2023Q2

REPORT INFORMATION
  Report Type: Report from Study
  Country: BR (occurrence: BR)
  Receive Date: 20230630
  Receipt Date: 20230630
  Transmission Date: 20230722
  Serious: Yes (Other)
  Sender: FDA-Public Use
  Company Number: BR-002147023-NVSC2023BR107786

PATIENT
  Sex: Male
  Weight: 74 kg

DRUGS (1)
  1. ADALIMUMAB [Suspect]
     Active Substance: ADALIMUMAB
     Indication: Ankylosing spondylitis
     Dosage: UNK
     Route: 065

REACTIONS (3)
  - Psoriatic arthropathy [Recovering/Resolving]
  - Dermatitis acneiform [Unknown]
  - Treatment failure [Recovered/Resolved with Sequelae]

NARRATIVE: CASE EVENT DATE: 20220526
